FAERS Safety Report 24665682 (Version 1)
Quarter: 2024Q4

REPORT INFORMATION
  Report Type: Spontaneous
  Country: US (occurrence: US)
  Receive Date: 20241126
  Receipt Date: 20241126
  Transmission Date: 20250114
  Serious: No
  Sender: PFIZER
  Company Number: US-PFIZER INC-PV202400152263

PATIENT
  Age: 51 Year
  Sex: Female

DRUGS (1)
  1. SOLU-MEDROL [Suspect]
     Active Substance: METHYLPREDNISOLONE SODIUM SUCCINATE
     Dosage: UNK

REACTIONS (7)
  - Dizziness [Unknown]
  - Asthenia [Unknown]
  - Balance disorder [Unknown]
  - Heart rate increased [Unknown]
  - Insomnia [Unknown]
  - Malaise [Unknown]
  - Weight increased [Unknown]
